FAERS Safety Report 14635383 (Version 1)
Quarter: 2018Q1

REPORT INFORMATION
  Report Type: Spontaneous
  Country: ZA (occurrence: ZA)
  Receive Date: 20180314
  Receipt Date: 20180314
  Transmission Date: 20180509
  Serious: Yes (Other)
  Sender: FDA-Public Use
  Company Number: ZA-PFIZER INC-2018102161

PATIENT
  Age: 80 Year
  Sex: Female

DRUGS (9)
  1. PHARMAPRESS /00574902/ [Suspect]
     Active Substance: ENALAPRIL MALEATE
     Dosage: 20 MG, UNK
  2. DISPRIN CARDIOCARE [Suspect]
     Active Substance: ASPIRIN
     Dosage: 100 MG, UNK
  3. BRAZEPAM [Suspect]
     Active Substance: BROMAZEPAM
     Dosage: 6 MG, UNK
  4. BISOHEXAL [Suspect]
     Active Substance: BISOPROLOL FUMARATE
     Dosage: 5 MG, UNK
  5. NEXOMIST [Suspect]
     Active Substance: MOMETASONE FUROATE
     Dosage: 50 UG  (140 METERED)
  6. CELEBREX [Suspect]
     Active Substance: CELECOXIB
     Dosage: 200 MG, UNK
  7. PREXUM [Suspect]
     Active Substance: PERINDOPRIL ERBUMINE
     Dosage: 10 MG, UNK
  8. MOVICOL [Suspect]
     Active Substance: POLYETHYLENE GLYCOL 3350\POTASSIUM CHLORIDE\SODIUM BICARBONATE\SODIUM CHLORIDE
     Dosage: UNK
  9. SYNALEVE /01057301/ [Suspect]
     Active Substance: ACETAMINOPHEN\CODEINE PHOSPHATE\PROMETHAZINE HYDROCHLORIDE
     Dosage: 8/200/400 MG, UNK

REACTIONS (2)
  - Renal cyst [Unknown]
  - Renal pain [Unknown]
